FAERS Safety Report 16140336 (Version 2)
Quarter: 2019Q2

REPORT INFORMATION
  Report Type: Report from Study
  Country: DO (occurrence: DO)
  Receive Date: 20190401
  Receipt Date: 20190415
  Transmission Date: 20190711
  Serious: Yes (Hospitalization)
  Sender: FDA-Public Use
  Company Number: PHHY2019DO073639

PATIENT
  Age: 40 Year
  Sex: Male

DRUGS (1)
  1. EXFORGE HCT [Suspect]
     Active Substance: AMLODIPINE BESYLATE\HYDROCHLOROTHIAZIDE\VALSARTAN
     Indication: HYPERTENSION
     Dosage: UNK (AMLODIPINE 10 MG,HYDROCHLOROTHIAZIDE 25MG, VALSARTAN 320 MG)
     Route: 065

REACTIONS (2)
  - Malaise [Unknown]
  - Diabetes mellitus [Recovering/Resolving]
